FAERS Safety Report 4366570-7 (Version None)
Quarter: 2004Q2

REPORT INFORMATION
  Report Type: 
  Country: None (occurrence: None)
  Receive Date: 20040524
  Receipt Date: 20040511
  Transmission Date: 20050107
  Serious: Yes (Hospitalization)
  Sender: FDA-Public Use
  Company Number: ZONI001417

PATIENT
  Age: 69 Year
  Sex: Female

DRUGS (5)
  1. EXCEGRAN (ZONISAMIDE) [Suspect]
     Indication: DRUG USE FOR UNKNOWN INDICATION
     Dosage: ORAL
     Route: 048
  2. ZALTOPROFEN (ZALTOPROFEN) [Concomitant]
  3. EPERISONE HYDROCHLORIDE [Concomitant]
  4. ZALTOPROFEN (ZALTIPROFEN) [Concomitant]
  5. EPERISONE HYDROCHLORIDE  (EPERISONE HYDROCHLORIDE) [Concomitant]

REACTIONS (2)
  - DRUG ERUPTION [None]
  - SKIN TEST POSITIVE [None]
